FAERS Safety Report 16797049 (Version 3)
Quarter: 2019Q4

REPORT INFORMATION
  Report Type: Spontaneous
  Country: PT (occurrence: PT)
  Receive Date: 20190911
  Receipt Date: 20191122
  Transmission Date: 20200122
  Serious: Yes (Other)
  Sender: FDA-Public Use
  Company Number: PHHY2019PT210739

PATIENT
  Age: 58 Year
  Sex: Male

DRUGS (6)
  1. SECUKINUMAB. [Suspect]
     Active Substance: SECUKINUMAB
     Indication: PSORIATIC ARTHROPATHY
     Dosage: 300 MG, QMO
     Route: 065
     Dates: start: 2017
  2. METHOTREXATE. [Concomitant]
     Active Substance: METHOTREXATE
     Indication: PSORIATIC ARTHROPATHY
     Dosage: UNK UNK, QW (UPTO 20 MG)
     Route: 065
  3. ADALIMUMAB [Suspect]
     Active Substance: ADALIMUMAB
     Indication: PSORIATIC ARTHROPATHY
     Dosage: 40 MG, QW
     Route: 065
     Dates: start: 2013
  4. CICLOSPORIN [Suspect]
     Active Substance: CYCLOSPORINE
     Indication: PSORIATIC ARTHROPATHY
     Dosage: UNK
     Route: 065
  5. INFLIXIMAB [Suspect]
     Active Substance: INFLIXIMAB
     Indication: PSORIATIC ARTHROPATHY
     Dosage: 5 MG/KG, UNK (EVERY 6 WEEKS DOSE)
     Route: 065
     Dates: start: 2003
  6. USTEKINUMAB [Suspect]
     Active Substance: USTEKINUMAB
     Indication: PSORIATIC ARTHROPATHY
     Dosage: 90 MG, UNK
     Route: 065

REACTIONS (9)
  - Overweight [Unknown]
  - Systemic inflammatory response syndrome [Unknown]
  - Psoriasis [Unknown]
  - Cholestasis [Unknown]
  - Arthropathy [Unknown]
  - Obesity [Unknown]
  - Transaminases increased [Unknown]
  - Hepatic steatosis [Unknown]
  - Hepatic fibrosis [Unknown]

NARRATIVE: CASE EVENT DATE: 2013
